FAERS Safety Report 22532152 (Version 6)
Quarter: 2023Q2

REPORT INFORMATION
  Report Type: Report from Study
  Country: US (occurrence: None)
  Receive Date: 20230607
  Receipt Date: 20230629
  Transmission Date: 20230721
  Serious: Yes (Other)
  Sender: FDA-Public Use
  Company Number: US-ROCHE-3118140

PATIENT
  Sex: Female
  Weight: 100 kg

DRUGS (21)
  1. RANIBIZUMAB [Suspect]
     Active Substance: RANIBIZUMAB
     Indication: Diabetic retinopathy
     Dosage: DRUG DOSE FIRST ADMINISTERED IS 10 MG/ML, DOSE LAST STUDY DRUG ADMIN PRIOR AE IS 100 MG/ML?START DAT
     Route: 050
     Dates: start: 20210706
  2. RANIBIZUMAB [Suspect]
     Active Substance: RANIBIZUMAB
  3. RANIBIZUMAB [Suspect]
     Active Substance: RANIBIZUMAB
  4. RANIBIZUMAB [Suspect]
     Active Substance: RANIBIZUMAB
  5. RANIBIZUMAB [Suspect]
     Active Substance: RANIBIZUMAB
  6. RANIBIZUMAB [Concomitant]
     Active Substance: RANIBIZUMAB
     Dosage: DRUG DOSE FIRST ADMINISTERED IS 6 MG/MLDOSE LAST STUDY DRUG ADMIN PRIOR AE IS 6 MG/ML?START DATE OF
     Route: 050
     Dates: start: 20210706
  7. FARXIGA [Concomitant]
     Active Substance: DAPAGLIFLOZIN PROPANEDIOL
     Indication: Diabetes mellitus
     Route: 048
     Dates: start: 2015
  8. HYDRALAZINE HCL [Concomitant]
     Active Substance: HYDRALAZINE HYDROCHLORIDE
     Indication: Hypertension
     Route: 048
     Dates: start: 1981
  9. METFORMIN [Concomitant]
     Active Substance: METFORMIN HYDROCHLORIDE
     Indication: Diabetes mellitus
     Route: 048
     Dates: start: 2015
  10. AMLODIPINE BESYLATE [Concomitant]
     Active Substance: AMLODIPINE BESYLATE
     Indication: Hypertension
     Route: 048
     Dates: start: 1981
  11. LOSARTAN AND HYDROCHLOROTHIAZIDE [Concomitant]
     Active Substance: HYDROCHLOROTHIAZIDE\LOSARTAN POTASSIUM
     Indication: Hypertension
     Route: 048
     Dates: start: 1981
  12. ATORVASTATIN [Concomitant]
     Active Substance: ATORVASTATIN
     Indication: Hypercholesterolaemia
     Route: 048
     Dates: start: 1981
  13. LEVOTHYROXINE [Concomitant]
     Active Substance: LEVOTHYROXINE
     Indication: Hyperthyroidism
     Route: 048
     Dates: start: 1990
  14. SOLIQUA 100/33 [Concomitant]
     Active Substance: INSULIN GLARGINE\LIXISENATIDE
     Indication: Diabetes mellitus
     Route: 058
     Dates: start: 2015
  15. ESCITALOPRAM [Concomitant]
     Active Substance: ESCITALOPRAM OXALATE
     Indication: Anxiety
     Route: 048
     Dates: start: 2018
  16. PYRIDOSTIGMINE BROMIDE [Concomitant]
     Active Substance: PYRIDOSTIGMINE BROMIDE
     Route: 048
  17. DORZOLAMIDE\TIMOLOL [Concomitant]
     Active Substance: DORZOLAMIDE\TIMOLOL
     Indication: Ocular hypertension
     Route: 047
     Dates: start: 20210506
  18. LATANOPROST [Concomitant]
     Active Substance: LATANOPROST
     Indication: Ocular hypertension
     Route: 047
     Dates: start: 20210506
  19. IBUPROFEN [Concomitant]
     Active Substance: IBUPROFEN
     Route: 048
     Dates: start: 20210810
  20. CARVEDILOL [Concomitant]
     Active Substance: CARVEDILOL
     Indication: Hypertension
     Route: 048
     Dates: start: 1981
  21. PRED FORTE [Concomitant]
     Active Substance: PREDNISOLONE ACETATE
     Dates: start: 20230602

REACTIONS (2)
  - Conjunctival erosion [Recovered/Resolved]
  - Endophthalmitis [Recovered/Resolved]

NARRATIVE: CASE EVENT DATE: 20220613
